FAERS Safety Report 24246726 (Version 2)
Quarter: 2024Q4

REPORT INFORMATION
  Report Type: Other
  Country: ES (occurrence: ES)
  Receive Date: 20240826
  Receipt Date: 20241102
  Transmission Date: 20250114
  Serious: Yes (Other)
  Sender: DENTSPLY
  Company Number: ES-DENTSPLY-2024SCDP000240

PATIENT
  Age: 70 Year
  Sex: Female

DRUGS (4)
  1. MEPIVACAINE [Suspect]
     Active Substance: MEPIVACAINE HYDROCHLORIDE
     Indication: Arthralgia
     Dosage: UNK DOSE OF MEPIVACAINE (1909A)
     Route: 052
     Dates: start: 20240524, end: 20240524
  2. TRIAMCINOLONE ACETONIDE [Suspect]
     Active Substance: TRIAMCINOLONE ACETONIDE
     Indication: Arthralgia
     Dosage: 40 MILLIGRAM TOTAL TRIGON DEPOT 40 MG/ML SUSPENSION FOR INJECTION (PDF) (3 VIALS OF 1 ML)
     Dates: start: 20240524
  3. CALCIUM CARBONATE\CHOLECALCIFEROL [Concomitant]
     Active Substance: CALCIUM CARBONATE\CHOLECALCIFEROL
     Indication: Product used for unknown indication
     Dosage: 1 DOSAGE FORM, QD DEMILOS 600 MG/1000 IU ORODISPERSIBLE TABLETS (PDF) (30 TABLETS)
     Route: 048
     Dates: start: 20170412
  4. LEVOTHYROXINE SODIUM [Concomitant]
     Active Substance: LEVOTHYROXINE SODIUM
     Indication: Product used for unknown indication
     Dosage: 88 MICROGRAM, QD EUTIROX 88 MCGS TABLETS (PFT) (100 TABLETS)
     Route: 048
     Dates: start: 20170412

REACTIONS (3)
  - Nausea [Recovered/Resolved]
  - Erythema [Recovered/Resolved]
  - Pruritus [Recovered/Resolved]

NARRATIVE: CASE EVENT DATE: 20240524
